FAERS Safety Report 5252263-0 (Version None)
Quarter: 2007Q1

REPORT INFORMATION
  Report Type: 
  Country: None (occurrence: None)
  Receive Date: 20070227
  Receipt Date: 20070227
  Transmission Date: 20070707
  Serious: Yes (Other)
  Sender: FDA-Public Use
  Company Number: None

PATIENT
  Age: 52 Year
  Sex: Female
  Weight: 71.6683 kg

DRUGS (2)
  1. XELODA [Suspect]
     Indication: BREAST CANCER
     Dosage: 3 TABLETS TWICE A DAY PO
     Route: 048
     Dates: start: 20070123, end: 20070206
  2. XELODA [Suspect]
     Indication: BREAST CANCER
     Dosage: 3 TABLETS TWICE A DAY PO
     Route: 048
     Dates: start: 20070213, end: 20070217

REACTIONS (9)
  - ALOPECIA [None]
  - BURNING SENSATION [None]
  - DEHYDRATION [None]
  - INFLAMMATION [None]
  - OEDEMA PERIPHERAL [None]
  - PAIN [None]
  - RASH GENERALISED [None]
  - RASH MACULAR [None]
  - SKIN DISCOLOURATION [None]
